FAERS Safety Report 8616564 (Version 2)
Quarter: 2013Q3

REPORT INFORMATION
  Report Type: Spontaneous
  Country: US (occurrence: US)
  Receive Date: 20120615
  Receipt Date: 20130724
  Transmission Date: 20140515
  Serious: Yes (Hospitalization, Disabling)
  Sender: FDA-Public Use
  Company Number: US-ASTRAZENECA-2012SE34419

PATIENT
  Age: 52 Year
  Sex: Female

DRUGS (5)
  1. NEXIUM [Suspect]
     Indication: GASTROOESOPHAGEAL REFLUX DISEASE
     Dosage: ONCE OR TWICE DAILY OR AS NEEDED
     Route: 048
     Dates: start: 2000, end: 2006
  2. SYNTHROID [Concomitant]
  3. ASPIRIN [Concomitant]
  4. SIMVASTATIN [Concomitant]
  5. MULTIVITAMINS [Concomitant]
     Dosage: DAILY

REACTIONS (5)
  - Accident at work [Unknown]
  - Exostosis [Unknown]
  - Osteoporosis [Unknown]
  - Foot fracture [Unknown]
  - Arthralgia [Unknown]
